FAERS Safety Report 24305045 (Version 1)
Quarter: 2024Q3

REPORT INFORMATION
  Report Type: Report from Study
  Country: CA (occurrence: CA)
  Receive Date: 20240911
  Receipt Date: 20240911
  Transmission Date: 20241017
  Serious: Yes (Other)
  Sender: AMGEN
  Company Number: CA-Vifor (International) Inc.-VIT-2024-08043

PATIENT
  Age: 83 Year
  Sex: Male

DRUGS (1)
  1. AVACOPAN [Suspect]
     Active Substance: AVACOPAN
     Indication: Anti-neutrophil cytoplasmic antibody positive vasculitis
     Dosage: 30 MILLIGRAM, QD
     Route: 048
     Dates: start: 20240825

REACTIONS (2)
  - Swelling face [Unknown]
  - Joint swelling [Unknown]

NARRATIVE: CASE EVENT DATE: 20240830
